FAERS Safety Report 18505823 (Version 1)
Quarter: 2020Q4

REPORT INFORMATION
  Report Type: Other
  Country: CA (occurrence: CA)
  Receive Date: 20201116
  Receipt Date: 20201116
  Transmission Date: 20210114
  Serious: Yes (Other)
  Sender: FDA-Public Use
  Company Number: CA-ROCHE-2714164

PATIENT
  Sex: Female

DRUGS (15)
  1. RITUXAN [Suspect]
     Active Substance: RITUXIMAB
     Indication: RHEUMATOID ARTHRITIS
     Dosage: DAY 1, DAY 15?NEXT DOSE RECEIVED ON 11/AUG/2020
     Route: 042
     Dates: start: 20200729
  2. RITUXAN [Suspect]
     Active Substance: RITUXIMAB
     Indication: COLLAGEN DISORDER
  3. HYDRASENSE EYE DROPS [Concomitant]
     Dosage: 1 DROP IN EACH EYE
     Route: 047
  4. NAPROXEN. [Concomitant]
     Active Substance: NAPROXEN
  5. PERINDOPRIL [Concomitant]
     Active Substance: PERINDOPRIL
  6. PREDNISONE. [Concomitant]
     Active Substance: PREDNISONE
  7. STATEX (CANADA) [Concomitant]
     Active Substance: MORPHINE SULFATE
  8. RISEDRONATE [Concomitant]
     Active Substance: RISEDRONATE SODIUM
  9. CALCIUM [Concomitant]
     Active Substance: CALCIUM
  10. ELIQUIS [Concomitant]
     Active Substance: APIXABAN
  11. FUROSEMIDE. [Concomitant]
     Active Substance: FUROSEMIDE
  12. COLCHICINE. [Concomitant]
     Active Substance: COLCHICINE
  13. D TABS [Concomitant]
     Active Substance: CHOLECALCIFEROL
  14. SYNTHROID [Concomitant]
     Active Substance: LEVOTHYROXINE SODIUM
  15. DEXILANT [Concomitant]
     Active Substance: DEXLANSOPRAZOLE

REACTIONS (3)
  - Herpes zoster [Unknown]
  - Off label use [Unknown]
  - Intentional product use issue [Unknown]
